FAERS Safety Report 9730611 (Version 3)
Quarter: 2016Q1

REPORT INFORMATION
  Report Type: Report from Study
  Country: US (occurrence: US)
  Receive Date: 20131205
  Receipt Date: 20160303
  Transmission Date: 20160526
  Serious: Yes (Death)
  Sender: FDA-Public Use
  Company Number: US-ROCHE-1312998

PATIENT
  Age: 53 Year
  Sex: Female

DRUGS (5)
  1. CATHFLO ACTIVASE [Suspect]
     Active Substance: ALTEPLASE
     Indication: IMPLANT SITE REACTION
     Route: 065
     Dates: start: 20130820
  2. ENOXAPARIN [Concomitant]
     Active Substance: ENOXAPARIN
     Route: 058
  3. DIAMOX SEQUELS [Concomitant]
     Active Substance: ACETAZOLAMIDE
     Route: 042
  4. BUMEX [Concomitant]
     Active Substance: BUMETANIDE
     Route: 042
  5. CATHFLO ACTIVASE [Suspect]
     Active Substance: ALTEPLASE
     Indication: GRAFT COMPLICATION

REACTIONS (1)
  - Death [Fatal]

NARRATIVE: CASE EVENT DATE: 20130820
